FAERS Safety Report 7973819-8 (Version None)
Quarter: 2011Q4

REPORT INFORMATION
  Report Type: 
  Country: None (occurrence: None)
  Receive Date: 20111209
  Receipt Date: 20111128
  Transmission Date: 20120403
  Serious: Yes (Other)
  Sender: FDA-Public Use
  Company Number: 2011P1013443

PATIENT
  Age: 12 Year
  Sex: Female

DRUGS (1)
  1. CEPHALEXIN [Suspect]
     Indication: PHARYNGITIS

REACTIONS (1)
  - PEMPHIGUS [None]
